FAERS Safety Report 23047207 (Version 1)
Quarter: 2023Q4

REPORT INFORMATION
  Report Type: Report from Study
  Country: US (occurrence: US)
  Receive Date: 20231009
  Receipt Date: 20231009
  Transmission Date: 20240110
  Serious: Yes (Other)
  Sender: FDA-Public Use
  Company Number: US-ABBVIE-5440929

PATIENT
  Age: 59 Year
  Sex: Male

DRUGS (2)
  1. RINVOQ [Suspect]
     Active Substance: UPADACITINIB
     Indication: Product used for unknown indication
     Dosage: STRENGTH: 15 MILLIGRAM?STOP: 2023
     Route: 048
     Dates: start: 20230926
  2. RINVOQ [Suspect]
     Active Substance: UPADACITINIB
     Indication: Product used for unknown indication
     Dosage: STRENGTH: 15 MILLIGRAM?STOP: SEP 2023
     Route: 048
     Dates: start: 20230906

REACTIONS (5)
  - Hypoacusis [Recovered/Resolved]
  - Ear infection [Unknown]
  - Ear haemorrhage [Unknown]
  - Tinnitus [Recovered/Resolved]
  - Tinnitus [Unknown]

NARRATIVE: CASE EVENT DATE: 20230901
